FAERS Safety Report 10794288 (Version 1)
Quarter: 2015Q1

REPORT INFORMATION
  Report Type: Spontaneous
  Country: FR (occurrence: FR)
  Receive Date: 20150213
  Receipt Date: 20150213
  Transmission Date: 20150721
  Serious: Yes (Hospitalization)
  Sender: FDA-Public Use
  Company Number: FR-ASTRAZENECA-2015SE13330

PATIENT
  Age: 75 Year
  Sex: Male

DRUGS (7)
  1. APROVEL [Suspect]
     Active Substance: IRBESARTAN
     Route: 048
     Dates: start: 1986
  2. ISOPTIN [Suspect]
     Active Substance: VERAPAMIL HYDROCHLORIDE
     Route: 048
     Dates: start: 1986
  3. HIRUCREME [Concomitant]
  4. KARDEGIC [Suspect]
     Active Substance: ASPIRIN LYSINE
     Route: 048
     Dates: start: 1986
  5. SINTROM [Suspect]
     Active Substance: ACENOCOUMAROL
     Route: 048
     Dates: start: 1986
  6. EFFERALGAN [Concomitant]
     Active Substance: ACETAMINOPHEN
  7. INEXIUM [Suspect]
     Active Substance: ESOMEPRAZOLE
     Route: 048

REACTIONS (1)
  - Haemarthrosis [Recovered/Resolved]

NARRATIVE: CASE EVENT DATE: 20141010
